FAERS Safety Report 4590612-7 (Version None)
Quarter: 2005Q1

REPORT INFORMATION
  Report Type: 
  Country: None (occurrence: None)
  Receive Date: 20050224
  Receipt Date: 20050215
  Transmission Date: 20050727
  Serious: Yes (Hospitalization)
  Sender: FDA-Public Use
  Company Number: GB-BRISTOL-MYERS SQUIBB COMPANY-12866273

PATIENT
  Age: 29 Year
  Sex: Female

DRUGS (2)
  1. AMIKIN [Suspect]
     Indication: BACTERAEMIA
     Route: 042
  2. AMIODARONE HCL [Concomitant]

REACTIONS (3)
  - BLOOD CREATINE PHOSPHOKINASE INCREASED [None]
  - LYMPHOCYTE COUNT INCREASED [None]
  - MYOSITIS [None]
